FAERS Safety Report 6831383-0 (Version None)
Quarter: 2010Q3

REPORT INFORMATION
  Report Type: 
  Country: None (occurrence: None)
  Receive Date: 20100707
  Receipt Date: 20100701
  Transmission Date: 20110219
  Serious: Yes (Other)
  Sender: FDA-Public Use
  Company Number: DSA_43290_2010

PATIENT
  Sex: Male

DRUGS (4)
  1. XENAZINE [Suspect]
     Indication: HUNTINGTON'S DISEASE
     Dosage: (DF ORAL), (25 MG BID ORAL)
     Route: 048
     Dates: start: 20100413, end: 20100601
  2. XENAZINE [Suspect]
     Indication: HUNTINGTON'S DISEASE
     Dosage: (DF ORAL), (25 MG BID ORAL)
     Route: 048
     Dates: start: 20100602, end: 20100622
  3. IBUPROFEN [Concomitant]
  4. MULTI-VITAMINS [Concomitant]

REACTIONS (4)
  - CONFUSIONAL STATE [None]
  - DEPRESSION [None]
  - INSOMNIA [None]
  - SOMNAMBULISM [None]
